FAERS Safety Report 15344850 (Version 1)
Quarter: 2018Q3

REPORT INFORMATION
  Report Type: Report from Study
  Country: US (occurrence: US)
  Receive Date: 20180903
  Receipt Date: 20180903
  Transmission Date: 20181010
  Serious: No
  Sender: FDA-Public Use
  Company Number: PHHY2018US087342

PATIENT
  Sex: Male
  Weight: 136.8 kg

DRUGS (1)
  1. COSENTYX [Suspect]
     Active Substance: SECUKINUMAB
     Indication: DYSHIDROTIC ECZEMA
     Dosage: 300 MG, QMO
     Route: 058
     Dates: start: 201805

REACTIONS (3)
  - Hangover [Unknown]
  - Product use in unapproved indication [Unknown]
  - Pain [Unknown]
